FAERS Safety Report 15224726 (Version 1)
Quarter: 2018Q3

REPORT INFORMATION
  Report Type: Spontaneous
  Country: US (occurrence: US)
  Receive Date: 20180705
  Receipt Date: 20180705
  Transmission Date: 20181010
  Serious: No
  Sender: FDA-Public Use
  Company Number: None

PATIENT
  Sex: Male
  Weight: 120.2 kg

DRUGS (2)
  1. OTREXUP [Suspect]
     Active Substance: METHOTREXATE
     Indication: RHEUMATOID ARTHRITIS
     Route: 058
     Dates: start: 201703
  2. OTREXUP [Suspect]
     Active Substance: METHOTREXATE
     Indication: IRIDOCYCLITIS

REACTIONS (3)
  - Nausea [None]
  - Joint swelling [None]
  - Arthralgia [None]
